FAERS Safety Report 8637634 (Version 3)
Quarter: 2012Q4

REPORT INFORMATION
  Report Type: 
  Country: US (occurrence: US)
  Receive Date: 20120627
  Receipt Date: 20121218
  Transmission Date: 20130627
  Serious: Yes (Other)
  Sender: FDA-Public Use
  Company Number: PHEH2012US012556

PATIENT
  Sex: Male
  Weight: 74 kg

DRUGS (3)
  1. GILENYA [Suspect]
     Indication: RELAPSING-REMITTING MULTIPLE SCLEROSIS
     Dosage: 0.5 mg, QD
     Route: 048
     Dates: start: 201202, end: 201207
  2. ALPRAZOLAM [Concomitant]
     Dosage: 1 mg, UNK
  3. SIMVASTATIN [Concomitant]
     Dosage: 20 mg, UNK

REACTIONS (3)
  - Chest discomfort [Recovered/Resolved]
  - Palpitations [Recovered/Resolved]
  - Electrocardiogram change [Not Recovered/Not Resolved]
